FAERS Safety Report 16277604 (Version 1)
Quarter: 2019Q2

REPORT INFORMATION
  Report Type: Spontaneous
  Country: IT (occurrence: IT)
  Receive Date: 20190506
  Receipt Date: 20190506
  Transmission Date: 20190711
  Serious: Yes (Hospitalization)
  Sender: FDA-Public Use
  Company Number: IT-MYLANLABS-2019M1042407

PATIENT
  Age: 54 Year
  Sex: Female

DRUGS (1)
  1. DIAZEPAM. [Suspect]
     Active Substance: DIAZEPAM
     Indication: PRODUCT USED FOR UNKNOWN INDICATION
     Dosage: UNK

REACTIONS (5)
  - Toxicity to various agents [Unknown]
  - Alcohol poisoning [Unknown]
  - Coma [Unknown]
  - Alcohol interaction [Unknown]
  - Drug abuse [Unknown]

NARRATIVE: CASE EVENT DATE: 20180107
